FAERS Safety Report 8986533 (Version 8)
Quarter: 2013Q2

REPORT INFORMATION
  Report Type: Report from Study
  Country: CA (occurrence: CA)
  Receive Date: 20121226
  Receipt Date: 20130601
  Transmission Date: 20140414
  Serious: Yes (Hospitalization, Other)
  Sender: FDA-Public Use
  Company Number: CA-ROCHE-1155570

PATIENT
  Age: 71 Year
  Sex: Male
  Weight: 106 kg

DRUGS (12)
  1. ACTEMRA [Suspect]
     Indication: RHEUMATOID ARTHRITIS
     Route: 042
     Dates: start: 20111111
  2. ACTEMRA [Suspect]
     Route: 042
     Dates: start: 20111207
  3. PREDNISONE [Concomitant]
  4. FOLIC ACID [Concomitant]
  5. ACTONEL [Concomitant]
  6. PANTOLOC [Concomitant]
  7. SYNTHROID [Concomitant]
  8. ANDROGEL [Concomitant]
  9. PLAVIX [Concomitant]
  10. LIPITOR [Concomitant]
  11. BABY ASPIRIN [Concomitant]
     Route: 065
  12. ALTACE [Concomitant]

REACTIONS (8)
  - Oesophagitis [Recovered/Resolved]
  - Thrombophlebitis [Recovering/Resolving]
  - Fibrosis [Not Recovered/Not Resolved]
  - Rash [Recovering/Resolving]
  - Synovial rupture [Recovering/Resolving]
  - Cystitis [Unknown]
  - Nasopharyngitis [Recovered/Resolved]
  - Urinary tract infection [Unknown]
